FAERS Safety Report 4321795-1 (Version None)
Quarter: 2004Q1

REPORT INFORMATION
  Report Type: 
  Country: None (occurrence: None)
  Receive Date: 20040322
  Receipt Date: 20031218
  Transmission Date: 20041129
  Serious: No
  Sender: FDA-Public Use
  Company Number: US-BRISTOL-MYERS SQUIBB COMPANY-12474920

PATIENT
  Age: 36 Year
  Sex: Female
  Weight: 66 kg

DRUGS (4)
  1. VAGISTAT-1 [Suspect]
     Indication: VAGINAL MYCOSIS
     Route: 067
     Dates: start: 20031214, end: 20031214
  2. TOPAMAX [Concomitant]
     Indication: MOOD SWINGS
  3. ADVAIR DISKUS 100/50 [Concomitant]
     Route: 055
  4. AUGMENTIN [Concomitant]
     Indication: PHARYNGITIS STREPTOCOCCAL

REACTIONS (3)
  - DRUG INEFFECTIVE [None]
  - VAGINAL BURNING SENSATION [None]
  - VULVOVAGINAL DISCOMFORT [None]
